FAERS Safety Report 5389972-9 (Version None)
Quarter: 2007Q3

REPORT INFORMATION
  Report Type: 
  Country: None (occurrence: None)
  Receive Date: 20070718
  Receipt Date: 20070711
  Transmission Date: 20080115
  Serious: Yes (Hospitalization)
  Sender: FDA-Public Use
  Company Number: US-ASTRAZENECA-2007UW16265

PATIENT
  Age: 8 Year

DRUGS (1)
  1. SEROQUEL [Suspect]
     Route: 048
     Dates: start: 20070629, end: 20070629

REACTIONS (3)
  - ACCIDENTAL EXPOSURE [None]
  - DRUG SCREEN POSITIVE [None]
  - MEDICATION ERROR [None]
